FAERS Safety Report 6403117-5 (Version None)
Quarter: 2009Q4

REPORT INFORMATION
  Report Type: 
  Country: None (occurrence: None)
  Receive Date: 20091013
  Receipt Date: 20090929
  Transmission Date: 20100525
  Serious: Yes (Death, Other)
  Sender: FDA-Public Use
  Company Number: 2007-00490

PATIENT
  Age: 61 Year
  Sex: Female
  Weight: 38 kg

DRUGS (4)
  1. VELCADE [Suspect]
     Indication: MULTIPLE MYELOMA
     Dosage: 1.60 MG;  120 MG, INTRAVENOUS; 1.00 MG
     Route: 042
     Dates: start: 20061201, end: 20061211
  2. VELCADE [Suspect]
     Indication: MULTIPLE MYELOMA
     Dosage: 1.60 MG;  120 MG, INTRAVENOUS; 1.00 MG
     Route: 042
     Dates: start: 20061226, end: 20070105
  3. VELCADE [Suspect]
     Indication: MULTIPLE MYELOMA
     Dosage: 1.60 MG;  120 MG, INTRAVENOUS; 1.00 MG
     Route: 042
     Dates: start: 20070117, end: 20070117
  4. DEXAMETHASONE [Concomitant]

REACTIONS (5)
  - ASTHENIA [None]
  - BLOOD LACTATE DEHYDROGENASE INCREASED [None]
  - HERPES ZOSTER [None]
  - ILEUS PARALYTIC [None]
  - MALIGNANT NEOPLASM PROGRESSION [None]
